FAERS Safety Report 21389044 (Version 2)
Quarter: 2022Q4

REPORT INFORMATION
  Report Type: Spontaneous
  Country: CA (occurrence: CA)
  Receive Date: 20220929
  Receipt Date: 20221006
  Transmission Date: 20230112
  Serious: Yes (Hospitalization, Other)
  Sender: FDA-Public Use
  Company Number: CA-ROCHE-3180676

PATIENT

DRUGS (3)
  1. CALCITRIOL [Suspect]
     Active Substance: CALCITRIOL
     Indication: Supplementation therapy
     Dosage: UNK
     Route: 065
  2. MAGNESIUM [Suspect]
     Active Substance: MAGNESIUM
     Indication: Supplementation therapy
     Dosage: UNK
     Route: 065
  3. CALCIUM [Suspect]
     Active Substance: CALCIUM
     Indication: Supplementation therapy
     Dosage: 290 GRAM
     Route: 042

REACTIONS (5)
  - Neonatal hypocalcaemia [Unknown]
  - Foetal biophysical profile score abnormal [Unknown]
  - Premature baby [Unknown]
  - Exposure via breast milk [Unknown]
  - Foetal exposure during pregnancy [Unknown]
